FAERS Safety Report 13895275 (Version 1)
Quarter: 2017Q3

REPORT INFORMATION
  Report Type: Spontaneous
  Country: US (occurrence: US)
  Receive Date: 20170818
  Receipt Date: 20170818
  Transmission Date: 20171127
  Serious: No
  Sender: FDA-Public Use
  Company Number: None

PATIENT
  Age: 62 Year
  Sex: Female
  Weight: 69.75 kg

DRUGS (1)
  1. RESTASIS [Suspect]
     Active Substance: CYCLOSPORINE
     Indication: DRY EYE
     Dosage: ?          QUANTITY:30 VIALS;?
     Route: 047
     Dates: start: 20161115, end: 20170817

REACTIONS (6)
  - Eye pain [None]
  - Headache [None]
  - Alopecia [None]
  - Ocular hyperaemia [None]
  - Eye irritation [None]
  - Dizziness [None]

NARRATIVE: CASE EVENT DATE: 20170415
